FAERS Safety Report 13600685 (Version 1)
Quarter: 2017Q2

REPORT INFORMATION
  Report Type: Spontaneous
  Country: US (occurrence: US)
  Receive Date: 20170601
  Receipt Date: 20170601
  Transmission Date: 20170830
  Serious: No
  Sender: FDA-Public Use
  Company Number: US-TEVA-745547USA

PATIENT
  Age: 62 Year
  Sex: Male
  Weight: 102.15 kg

DRUGS (5)
  1. CINQAIR [Suspect]
     Active Substance: RESLIZUMAB
     Indication: OXYGEN CONSUMPTION DECREASED
  2. SYMBICORT [Concomitant]
     Active Substance: BUDESONIDE\FORMOTEROL FUMARATE DIHYDRATE
     Indication: ASTHMA
  3. MEPOLIZUMAB [Concomitant]
     Active Substance: MEPOLIZUMAB
  4. CINQAIR [Suspect]
     Active Substance: RESLIZUMAB
     Indication: EOSINOPHIL COUNT INCREASED
  5. CINQAIR [Suspect]
     Active Substance: RESLIZUMAB
     Indication: ASTHMA
     Dates: start: 20170106

REACTIONS (7)
  - Fatigue [Unknown]
  - Faeces discoloured [Unknown]
  - Respiratory disorder [Unknown]
  - Productive cough [Unknown]
  - Abnormal faeces [Not Recovered/Not Resolved]
  - Wheezing [Unknown]
  - Faeces soft [Not Recovered/Not Resolved]

NARRATIVE: CASE EVENT DATE: 201701
